FAERS Safety Report 7790268-6 (Version None)
Quarter: 2011Q3

REPORT INFORMATION
  Report Type: 
  Country: None (occurrence: None)
  Receive Date: 20110930
  Receipt Date: 20110926
  Transmission Date: 20111222
  Serious: Yes (Death, Hospitalization, Other)
  Sender: FDA-Public Use
  Company Number: PHHY2011GB85072

PATIENT
  Age: 8 Year
  Sex: Female
  Weight: 22.4 kg

DRUGS (18)
  1. CYCLOPHOSPHAMIDE [Suspect]
     Indication: BONE MARROW FAILURE
     Dosage: 1120 MG, UNK
     Route: 042
     Dates: start: 20110429, end: 20110502
  2. MABCAMPATH [Suspect]
     Indication: BONE MARROW FAILURE
     Dosage: UNK
     Dates: start: 20110426, end: 20110428
  3. ALLOPURINOL [Concomitant]
  4. CASPOFUNGIN ACETATE [Concomitant]
  5. DEFIBROTIDE [Concomitant]
  6. BUSULFAN [Suspect]
     Indication: BONE MARROW FAILURE
     Dosage: 23 MG, UNK
     Dates: start: 20110425, end: 20110428
  7. AMPHOTERICIN B [Concomitant]
  8. DAPSONE [Concomitant]
  9. ISONIAZID [Concomitant]
  10. LINEZOLID [Concomitant]
  11. METHOTREXATE [Suspect]
     Indication: GRAFT VERSUS HOST DISEASE
     Dosage: UNK
     Route: 042
     Dates: start: 20110508, end: 20110511
  12. CYCLOSPORINE [Concomitant]
  13. OCTREOTIDE ACETATE [Concomitant]
  14. IMMUNE GLOBULIN NOS [Concomitant]
  15. PHENYTOIN [Concomitant]
  16. GANCICLOVIR [Concomitant]
  17. MESNA [Concomitant]
  18. MEPERIDINE HCL [Concomitant]

REACTIONS (12)
  - PULMONARY HYPERTENSION [None]
  - PNEUMONITIS [None]
  - PULMONARY HAEMORRHAGE [None]
  - CYTOMEGALOVIRUS INFECTION [None]
  - MUCOSAL INFLAMMATION [None]
  - VENOOCCLUSIVE DISEASE [None]
  - RESPIRATORY FAILURE [None]
  - IDIOPATHIC PNEUMONIA SYNDROME [None]
  - LIVER DISORDER [None]
  - RENAL IMPAIRMENT [None]
  - ADENOVIRUS INFECTION [None]
  - METHYLOBACTERIUM INFECTION [None]
